FAERS Safety Report 8663957 (Version 2)
Quarter: 2013Q4

REPORT INFORMATION
  Report Type: Report from Study
  Country: US (occurrence: US)
  Receive Date: 20120713
  Receipt Date: 20131101
  Transmission Date: 20140711
  Serious: No
  Sender: FDA-Public Use
  Company Number: US-009507513-1207USA000849

PATIENT
  Age: 26 Year
  Sex: Female

DRUGS (11)
  1. VICTRELIS [Suspect]
     Dosage: 800 MG, TID
     Route: 048
  2. PEG-INTRON [Suspect]
     Dosage: UNK
  3. REBETOL [Suspect]
  4. ORTHO TRI-CYCLEN [Concomitant]
  5. MACROBID (NITROFURANTOIN) [Concomitant]
  6. VITAMIN B-12 [Concomitant]
  7. ALEVE [Concomitant]
  8. VITAMIN C [Concomitant]
  9. ASPIRIN [Concomitant]
  10. MILK THISTLE [Concomitant]
  11. VITAMIN D (UNSPECIFIED) [Concomitant]
     Dosage: UNK

REACTIONS (1)
  - Menstruation irregular [Unknown]
